FAERS Safety Report 5729277-7 (Version None)
Quarter: 2008Q2

REPORT INFORMATION
  Report Type: 
  Country: None (occurrence: None)
  Receive Date: 20080506
  Receipt Date: 20080424
  Transmission Date: 20081010
  Serious: Yes (Other)
  Sender: FDA-Public Use
  Company Number: GB-PFIZER INC-2008031205

PATIENT
  Age: 47 Year
  Sex: Female

DRUGS (5)
  1. ZARONTIN [Suspect]
     Indication: EPILEPSY
     Route: 048
  2. DRUG, UNSPECIFIED [Suspect]
  3. TEGRETOL [Concomitant]
  4. CLONAZEPAM [Concomitant]
  5. TETRACYCLINE [Concomitant]

REACTIONS (9)
  - FLIGHT OF IDEAS [None]
  - GRAND MAL CONVULSION [None]
  - HALLUCINATION [None]
  - HYPERSOMNIA [None]
  - LETHARGY [None]
  - ORAL INTAKE REDUCED [None]
  - PETIT MAL EPILEPSY [None]
  - TRANCE [None]
  - WITHDRAWAL SYNDROME [None]
